FAERS Safety Report 6593781-2 (Version None)
Quarter: 2010Q1

REPORT INFORMATION
  Report Type: 
  Country: None (occurrence: None)
  Receive Date: 20100128
  Receipt Date: 20100121
  Transmission Date: 20100710
  Serious: Yes (Hospitalization)
  Sender: FDA-Public Use
  Company Number: 2010AL000422

PATIENT
  Age: 40 Year
  Sex: Male

DRUGS (2)
  1. ACETASOL HC [Suspect]
     Dosage: 4 GTT;QID;IAUR
     Route: 001
     Dates: start: 20100115
  2. ORAL ANTIBIOTICS [Concomitant]

REACTIONS (2)
  - DRUG HYPERSENSITIVITY [None]
  - PAIN [None]
